FAERS Safety Report 19269831 (Version 2)
Quarter: 2021Q2

REPORT INFORMATION
  Report Type: Spontaneous
  Country: US (occurrence: US)
  Receive Date: 20210518
  Receipt Date: 20210603
  Transmission Date: 20210717
  Serious: Yes (Hospitalization, Other)
  Sender: FDA-Public Use
  Company Number: US-SAOL THERAPEUTICS-2021SAO00181

PATIENT
  Sex: Male

DRUGS (1)
  1. LIORESAL [Suspect]
     Active Substance: BACLOFEN
     Indication: MUSCLE SPASTICITY
     Dosage: 125 ?G, \DAY
     Route: 037

REACTIONS (3)
  - Surgery [Recovered/Resolved]
  - Muscle spasticity [Recovered/Resolved]
  - Complication associated with device [Recovered/Resolved]
